FAERS Safety Report 5473644-6 (Version None)
Quarter: 2007Q4

REPORT INFORMATION
  Report Type: 
  Country: None (occurrence: None)
  Receive Date: 20071001
  Receipt Date: 20070924
  Transmission Date: 20080405
  Serious: Yes (Other)
  Sender: FDA-Public Use
  Company Number: US-ROXANE LABORATORIES, INC-2007-BP-21545RO

PATIENT
  Age: 57 Year
  Sex: Female

DRUGS (5)
  1. CYCLOPHOSPHAMIDE [Suspect]
     Indication: NON-HODGKIN'S LYMPHOMA
  2. PREDNISONE [Suspect]
     Indication: NON-HODGKIN'S LYMPHOMA
  3. DOXORUBICIN HCL [Suspect]
     Indication: NON-HODGKIN'S LYMPHOMA
  4. VINCRISTINE [Suspect]
     Indication: NON-HODGKIN'S LYMPHOMA
  5. RITUXAN [Suspect]
     Indication: NON-HODGKIN'S LYMPHOMA

REACTIONS (2)
  - SARCOIDOSIS [None]
  - SPLENIC GRANULOMA [None]
